FAERS Safety Report 7879854-2 (Version None)
Quarter: 2011Q4

REPORT INFORMATION
  Report Type: 
  Country: None (occurrence: None)
  Receive Date: 20111101
  Receipt Date: 20111027
  Transmission Date: 20120403
  Serious: Yes (Hospitalization)
  Sender: FDA-Public Use
  Company Number: CA-ROCHE-1000669

PATIENT
  Sex: Male

DRUGS (3)
  1. COPEGUS [Suspect]
     Indication: HEPATITIS C
     Route: 048
     Dates: start: 20110801
  2. PEGASYS [Suspect]
     Indication: HEPATITIS C
     Route: 058
     Dates: start: 20110801
  3. VICTRELIS [Suspect]
     Indication: HEPATITIS C
     Route: 048
     Dates: start: 20110901

REACTIONS (5)
  - RED BLOOD CELL ABNORMALITY [None]
  - ANAEMIA [None]
  - MYOCARDIAL INFARCTION [None]
  - VASCULITIS [None]
  - CRYOGLOBULINAEMIA [None]
